FAERS Safety Report 14441602 (Version 1)
Quarter: 2018Q1

REPORT INFORMATION
  Report Type: Spontaneous
  Country: US (occurrence: US)
  Receive Date: 20180125
  Receipt Date: 20180125
  Transmission Date: 20180509
  Serious: No
  Sender: FDA-Public Use
  Company Number: US-GLAXOSMITHKLINE-US2018012344

PATIENT
  Age: 68 Year
  Sex: Male

DRUGS (9)
  1. CRESTOR [Concomitant]
     Active Substance: ROSUVASTATIN CALCIUM
  2. HYDROCHLOROTHIAZIDE AND LOSARTAN [Concomitant]
  3. PREDNISONE. [Concomitant]
     Active Substance: PREDNISONE
  4. VITAMIN C [Concomitant]
     Active Substance: ASCORBIC ACID
  5. ADVIL [Concomitant]
     Active Substance: IBUPROFEN
  6. VENTOLIN HFA [Suspect]
     Active Substance: ALBUTEROL SULFATE
     Indication: BRONCHITIS
  7. VITAMIN D3 [Concomitant]
     Active Substance: CHOLECALCIFEROL
  8. VENTOLIN HFA [Suspect]
     Active Substance: ALBUTEROL SULFATE
     Indication: DYSPNOEA
     Dosage: 2 PUFF(S), UNK
     Route: 055
     Dates: start: 20180112, end: 20180118
  9. PLAVIX [Concomitant]
     Active Substance: CLOPIDOGREL BISULFATE

REACTIONS (5)
  - Gingival pain [Not Recovered/Not Resolved]
  - Ageusia [Not Recovered/Not Resolved]
  - Gingival swelling [Not Recovered/Not Resolved]
  - Pain in jaw [Not Recovered/Not Resolved]
  - Product use in unapproved indication [Recovered/Resolved]

NARRATIVE: CASE EVENT DATE: 20180112
